FAERS Safety Report 9585789 (Version 1)
Quarter: 2013Q4

REPORT INFORMATION
  Report Type: Spontaneous
  Country: US (occurrence: None)
  Receive Date: 20131002
  Receipt Date: 20131002
  Transmission Date: 20140711
  Serious: No
  Sender: FDA-Public Use
  Company Number: None

PATIENT
  Age: 30 Year
  Sex: Male
  Weight: 97.52 kg

DRUGS (1)
  1. BUPRENORPHINE/ NALOXONE DIHYDRATE [Suspect]
     Indication: DRUG DEPENDENCE
     Route: 060

REACTIONS (5)
  - Hyperhidrosis [None]
  - Drug dependence [None]
  - Headache [None]
  - Tremor [None]
  - Insomnia [None]
